FAERS Safety Report 9359993 (Version 1)
Quarter: 2013Q2

REPORT INFORMATION
  Report Type: Spontaneous
  Country: US (occurrence: None)
  Receive Date: 20130620
  Receipt Date: 20130620
  Transmission Date: 20140414
  Serious: Yes (Death)
  Sender: FDA-Public Use
  Company Number: None

PATIENT
  Age: 79 Year
  Sex: Female
  Weight: 58.06 kg

DRUGS (1)
  1. CYMBALTA [Suspect]
     Indication: ASTHENIA
     Dates: start: 20130521, end: 20130524

REACTIONS (18)
  - Feeling abnormal [None]
  - Restlessness [None]
  - Anxiety [None]
  - Fall [None]
  - Head injury [None]
  - Convulsion [None]
  - Cerebrovascular accident [None]
  - Unresponsive to stimuli [None]
  - Traumatic intracranial haemorrhage [None]
  - Hip fracture [None]
  - Laceration [None]
  - Aphasia [None]
  - Dysphagia [None]
  - Infusion site extravasation [None]
  - Haemorrhage [None]
  - Pain [None]
  - Neck injury [None]
  - Back disorder [None]
